FAERS Safety Report 5045692-1 (Version None)
Quarter: 2006Q3

REPORT INFORMATION
  Report Type: 
  Country: None (occurrence: None)
  Receive Date: 20060707
  Receipt Date: 20060703
  Transmission Date: 20061208
  Serious: Yes (Other)
  Sender: FDA-Public Use
  Company Number: AU-MERCK-0607AUS00009

PATIENT
  Age: 90 Year
  Sex: Female

DRUGS (4)
  1. FOSAMAX [Suspect]
     Indication: OSTEOPOROSIS
     Route: 048
     Dates: start: 20000101
  2. PHENYTOIN [Concomitant]
     Indication: CONVULSION
     Route: 065
     Dates: start: 19960101
  3. ATORVASTATIN CALCIUM [Concomitant]
     Route: 065
  4. WARFARIN [Concomitant]
     Route: 065

REACTIONS (1)
  - BREAST CANCER [None]
